FAERS Safety Report 14570406 (Version 5)
Quarter: 2018Q3

REPORT INFORMATION
  Report Type: Spontaneous
  Country: GB (occurrence: GB)
  Receive Date: 20180226
  Receipt Date: 20180711
  Transmission Date: 20181010
  Serious: Yes (Death, Life-Threatening, Hospitalization, Other)
  Sender: FDA-Public Use
  Company Number: GB-CONCORDIA PHARMACEUTICALS INC.-E2B_00009976

PATIENT
  Age: 85 Year
  Sex: Female

DRUGS (2)
  1. PREDNISOLONE. [Suspect]
     Active Substance: PREDNISOLONE
     Indication: TEMPORAL ARTERITIS
     Dosage: DOSE WAS REDUCED TO 10 MG DAILY
     Route: 065
  2. GENTAMICIN. [Concomitant]
     Active Substance: GENTAMICIN
     Route: 042

REACTIONS (16)
  - Skin erosion [Fatal]
  - Psoas abscess [Fatal]
  - Sepsis [Fatal]
  - Necrosis [Fatal]
  - Blister [Fatal]
  - Pseudomonal sepsis [Fatal]
  - Pseudomonas infection [Fatal]
  - Rash pustular [Fatal]
  - Pyrexia [Fatal]
  - Dermatitis bullous [Fatal]
  - Blood alkaline phosphatase increased [Fatal]
  - Erythema [Fatal]
  - Oedema [Fatal]
  - Haemorrhage [Fatal]
  - Ecthyma [Fatal]
  - Pain [Fatal]
